FAERS Safety Report 16893801 (Version 1)
Quarter: 2019Q4

REPORT INFORMATION
  Report Type: Spontaneous
  Country: US (occurrence: US)
  Receive Date: 20191008
  Receipt Date: 20191008
  Transmission Date: 20200122
  Serious: Yes (Other)
  Sender: FDA-Public Use
  Company Number: US-PFIZER INC-2019427808

PATIENT
  Sex: Female

DRUGS (1)
  1. IBRANCE [Suspect]
     Active Substance: PALBOCICLIB
     Dosage: 100 MG, UNK

REACTIONS (5)
  - Laboratory test abnormal [Recovered/Resolved]
  - Wrong technique in product usage process [Unknown]
  - Product dose omission [Unknown]
  - Dysphagia [Unknown]
  - Choking [Unknown]
